FAERS Safety Report 14135980 (Version 2)
Quarter: 2017Q4

REPORT INFORMATION
  Report Type: Report from Study
  Country: US (occurrence: US)
  Receive Date: 20171027
  Receipt Date: 20171115
  Transmission Date: 20180321
  Serious: Yes (Other)
  Sender: FDA-Public Use
  Company Number: US-AMGEN-USASL2017150170

PATIENT
  Age: 58 Year
  Sex: Female

DRUGS (1)
  1. REPATHA [Suspect]
     Active Substance: EVOLOCUMAB
     Indication: HYPERCHOLESTEROLAEMIA
     Dosage: 140 MG, Q2WK
     Route: 065
     Dates: start: 20170822, end: 2017

REACTIONS (12)
  - Oral discomfort [Unknown]
  - Pain [Unknown]
  - Throat tightness [Unknown]
  - Abdominal pain upper [Unknown]
  - Chapped lips [Unknown]
  - Paranasal sinus hypersecretion [Unknown]
  - Malaise [Unknown]
  - Lip swelling [Unknown]
  - Labile blood pressure [Unknown]
  - Swelling face [Unknown]
  - Nasopharyngitis [Unknown]
  - Peripheral swelling [Unknown]

NARRATIVE: CASE EVENT DATE: 2017
